FAERS Safety Report 9991848 (Version 1)
Quarter: 2014Q1

REPORT INFORMATION
  Report Type: Spontaneous
  Country: US (occurrence: None)
  Receive Date: 20140123
  Receipt Date: 20140123
  Transmission Date: 20141002
  Serious: Yes (Hospitalization)
  Sender: FDA-Public Use
  Company Number: UTC-040486

PATIENT
  Age: 66 Year
  Sex: Female

DRUGS (3)
  1. TYVASO [Suspect]
     Indication: PRODUCT USED FOR UNKNOWN INDICATION
     Route: 055
     Dates: start: 201306
  2. ATIVAN [Suspect]
     Indication: PRODUCT USED FOR UNKNOWN INDICATION
  3. TRAZODONE [Suspect]
     Indication: PRODUCT USED FOR UNKNOWN INDICATION

REACTIONS (1)
  - Syncope [None]
